FAERS Safety Report 12358358 (Version 1)
Quarter: 2016Q2

REPORT INFORMATION
  Report Type: Spontaneous
  Country: US (occurrence: None)
  Receive Date: 20160511
  Receipt Date: 20160511
  Transmission Date: 20160815
  Serious: No
  Sender: FDA-Public Use
  Company Number: None

PATIENT
  Age: 68 Year
  Sex: Female
  Weight: 69.85 kg

DRUGS (7)
  1. MAGNESIUM [Concomitant]
     Active Substance: MAGNESIUM
  2. GLIPIZIDE XL [Concomitant]
     Active Substance: GLIPIZIDE
  3. ZETIA [Suspect]
     Active Substance: EZETIMIBE
     Indication: BLOOD CHOLESTEROL INCREASED
     Route: 048
     Dates: start: 20160203, end: 20160207
  4. LANTUS SOLOSTAR INSULIN PEN [Concomitant]
  5. VITAMIN D3 [Concomitant]
     Active Substance: CHOLECALCIFEROL
  6. WOMEN^S VITAFUSION GUMMY VITAMINS [Concomitant]
  7. BENAZIPRIL [Concomitant]

REACTIONS (4)
  - Nightmare [None]
  - Dyspepsia [None]
  - Muscle spasms [None]
  - Skin odour abnormal [None]

NARRATIVE: CASE EVENT DATE: 20160202
